FAERS Safety Report 7263605-9 (Version None)
Quarter: 2011Q1

REPORT INFORMATION
  Report Type: 
  Country: None (occurrence: None)
  Receive Date: 20110130
  Receipt Date: 20101028
  Transmission Date: 20110831
  Serious: No
  Sender: FDA-Public Use
  Company Number: US-ABBOTT-10P-163-0682077-00

PATIENT
  Age: 41 Year
  Sex: Female

DRUGS (10)
  1. LOPERAMIDE [Concomitant]
     Indication: DIARRHOEA
  2. LOMOTIL [Concomitant]
     Indication: DIARRHOEA
  3. DEMEROL [Concomitant]
     Indication: PAIN
     Dosage: OCCASIONALLY
  4. MULTIVITAMIN [Concomitant]
     Indication: PRODUCT USED FOR UNKNOWN INDICATION
  5. PERIGORIC [Concomitant]
     Indication: DIARRHOEA
  6. PHENERGAN HCL [Concomitant]
     Indication: NAUSEA
     Dosage: OCCASIONALLY
  7. AMBIEN [Concomitant]
     Indication: INSOMNIA
     Dosage: OCCASIONALLY
  8. FOLIC ACID [Concomitant]
     Indication: PRODUCT USED FOR UNKNOWN INDICATION
  9. CALCIUM [Concomitant]
     Indication: PRODUCT USED FOR UNKNOWN INDICATION
  10. HUMIRA [Suspect]
     Indication: CROHN'S DISEASE
     Dates: start: 20090419

REACTIONS (4)
  - INJECTION SITE SWELLING [None]
  - INJECTION SITE REACTION [None]
  - INJECTION SITE ERYTHEMA [None]
  - INJECTION SITE PRURITUS [None]
